FAERS Safety Report 4693719-9 (Version None)
Quarter: 2005Q2

REPORT INFORMATION
  Report Type: 
  Country: None (occurrence: None)
  Receive Date: 20050615
  Receipt Date: 20050527
  Transmission Date: 20051028
  Serious: Yes (Other)
  Sender: FDA-Public Use
  Company Number: US_0411107948

PATIENT
  Age: 73 Year
  Sex: Female

DRUGS (1)
  1. EVISTA [Suspect]

REACTIONS (3)
  - CHRONIC OBSTRUCTIVE PULMONARY DISEASE [None]
  - LUNG NEOPLASM MALIGNANT [None]
  - MYCOBACTERIUM AVIUM COMPLEX INFECTION [None]
